FAERS Safety Report 9676108 (Version 1)
Quarter: 2013Q4

REPORT INFORMATION
  Report Type: Report from Study
  Country: DE (occurrence: DE)
  Receive Date: 20131107
  Receipt Date: 20131107
  Transmission Date: 20140711
  Serious: Yes (Other)
  Sender: FDA-Public Use
  Company Number: DE-ABBVIE-13P-062-1164292-00

PATIENT
  Age: 37 Year
  Sex: Male
  Weight: 63 kg

DRUGS (2)
  1. HUMIRA [Suspect]
     Indication: PSORIASIS
     Route: 058
     Dates: start: 20120511, end: 20130521
  2. RAMIPRIL [Concomitant]
     Indication: HYPERTENSION

REACTIONS (5)
  - Fall [Not Recovered/Not Resolved]
  - Tendon rupture [Not Recovered/Not Resolved]
  - Fracture [Not Recovered/Not Resolved]
  - Drug effect decreased [Unknown]
  - Psoriasis [Unknown]
